FAERS Safety Report 10597037 (Version 1)
Quarter: 2014Q4

REPORT INFORMATION
  Report Type: Spontaneous
  Country: IN (occurrence: IN)
  Receive Date: 20141121
  Receipt Date: 20141121
  Transmission Date: 20150529
  Serious: Yes (Hospitalization)
  Sender: FDA-Public Use
  Company Number: IN-CIPLA LTD.-2014IN02045

PATIENT

DRUGS (1)
  1. AMLODIPINE [Suspect]
     Active Substance: AMLODIPINE BESYLATE
     Dosage: 5 MG (55 TABLETS)

REACTIONS (10)
  - Shock [Recovered/Resolved]
  - Muscle necrosis [Recovered/Resolved]
  - Ischaemia [Recovered/Resolved]
  - Overdose [Recovered/Resolved]
  - Acute lung injury [Recovered/Resolved]
  - Amputation [Recovered/Resolved]
  - Hypotension [Recovered/Resolved]
  - Multi-organ failure [Recovered/Resolved]
  - Compartment syndrome [Recovered/Resolved]
  - Rhabdomyolysis [Recovered/Resolved]
